FAERS Safety Report 15936527 (Version 1)
Quarter: 2019Q1

REPORT INFORMATION
  Report Type: Spontaneous
  Country: US (occurrence: US)
  Receive Date: 20190117
  Receipt Date: 20190117
  Transmission Date: 20190417
  Serious: No
  Sender: FDA-Public Use
  Company Number: None

PATIENT
  Age: 71 Year
  Sex: Female

DRUGS (1)
  1. CAPECITABINE 500MG [Suspect]
     Active Substance: CAPECITABINE
     Dosage: ?          OTHER FREQUENCY:2 IN AM; 3 IN PM;?
     Route: 048
     Dates: start: 20170626

REACTIONS (4)
  - Joint noise [None]
  - Pruritus [None]
  - Skin exfoliation [None]
  - Unevaluable event [None]

NARRATIVE: CASE EVENT DATE: 2018
